FAERS Safety Report 14959374 (Version 7)
Quarter: 2020Q1

REPORT INFORMATION
  Report Type: Report from Study
  Country: US (occurrence: US)
  Receive Date: 20180531
  Receipt Date: 20200326
  Transmission Date: 20200409
  Serious: No
  Sender: FDA-Public Use
  Company Number: US-INCYTE CORPORATION-2018IN004160

PATIENT

DRUGS (2)
  1. JAKAFI [Suspect]
     Active Substance: RUXOLITINIB
     Indication: MYELOFIBROSIS
     Dosage: 20 MG, BID
     Route: 048
     Dates: start: 20180417
  2. PREDNISONE. [Suspect]
     Active Substance: PREDNISONE
     Indication: PRODUCT USED FOR UNKNOWN INDICATION
     Route: 065

REACTIONS (21)
  - General physical health deterioration [Unknown]
  - Ear disorder [Recovered/Resolved]
  - Sinus disorder [Unknown]
  - Contusion [Unknown]
  - Muscle spasms [Unknown]
  - White blood cell count abnormal [Recovered/Resolved]
  - Furuncle [Recovering/Resolving]
  - Scab [Recovering/Resolving]
  - Bone pain [Unknown]
  - White blood cell count decreased [Recovered/Resolved]
  - Blood cholesterol increased [Unknown]
  - Platelet count abnormal [Recovered/Resolved]
  - Body temperature increased [Recovering/Resolving]
  - Platelet count increased [Recovered/Resolved]
  - Ear infection [Unknown]
  - Sinus congestion [Recovering/Resolving]
  - Product dose omission [Unknown]
  - Respiratory symptom [Unknown]
  - Influenza [Unknown]
  - Cough [Recovered/Resolved]
  - Upper respiratory tract infection [Unknown]

NARRATIVE: CASE EVENT DATE: 201804
